FAERS Safety Report 9678049 (Version 1)
Quarter: 2013Q4

REPORT INFORMATION
  Report Type: Spontaneous
  Country: DK (occurrence: None)
  Receive Date: 20131106
  Receipt Date: 20131106
  Transmission Date: 20140711
  Serious: Yes (Hospitalization, Other)
  Sender: FDA-Public Use
  Company Number: 2013P1020731

PATIENT
  Age: 23 Year
  Sex: Female

DRUGS (3)
  1. ZINACEF [Suspect]
     Route: 042
     Dates: start: 20121118, end: 20121119
  2. GENTAMICIN SULPHATE [Suspect]
     Indication: LYMPHADENOPATHY
     Route: 042
     Dates: start: 20121118
  3. GARDASIL [Suspect]
     Dosage: X1
     Dates: start: 20121116, end: 20121116

REACTIONS (7)
  - Lymphadenopathy [None]
  - Stevens-Johnson syndrome [None]
  - Headache [None]
  - Disturbance in attention [None]
  - Memory impairment [None]
  - Dizziness [None]
  - Pain in extremity [None]
